FAERS Safety Report 9100278 (Version 1)
Quarter: 2013Q1

REPORT INFORMATION
  Report Type: Spontaneous
  Country: US (occurrence: US)
  Receive Date: 20130215
  Receipt Date: 20130215
  Transmission Date: 20140127
  Serious: No
  Sender: FDA-Public Use
  Company Number: US-PFIZER INC-2013057031

PATIENT
  Age: 32 Year
  Sex: Female
  Weight: 54.42 kg

DRUGS (3)
  1. VENLAFAXINE HYDROCHLORIDE [Suspect]
     Indication: DEPRESSION
     Dosage: 37.5 MG, 1X/DAY
     Route: 048
     Dates: start: 20130108, end: 201302
  2. VENLAFAXINE HYDROCHLORIDE [Suspect]
     Indication: ANXIETY
     Dosage: 37.5 MG, ALTERNATE DAY
     Route: 048
     Dates: start: 201302
  3. VENLAFAXINE HYDROCHLORIDE [Suspect]
     Indication: PANIC ATTACK

REACTIONS (10)
  - Withdrawal syndrome [Unknown]
  - Panic disorder [Unknown]
  - Diarrhoea [Unknown]
  - Insomnia [Unknown]
  - Night sweats [Unknown]
  - Feeling of body temperature change [Unknown]
  - Headache [Unknown]
  - Inappropriate schedule of drug administration [Unknown]
  - Nervousness [Unknown]
  - Wrong technique in drug usage process [Unknown]
